FAERS Safety Report 11044960 (Version 1)
Quarter: 2015Q2

REPORT INFORMATION
  Report Type: Report from Study
  Country: US (occurrence: US)
  Receive Date: 20150417
  Receipt Date: 20150417
  Transmission Date: 20150821
  Serious: Yes (Hospitalization)
  Sender: FDA-Public Use
  Company Number: US-JNJFOC-20150404978

PATIENT
  Age: 67 Year
  Sex: Male
  Weight: 113 kg

DRUGS (20)
  1. AMLODIPINE [Concomitant]
     Active Substance: AMLODIPINE BESYLATE
     Indication: HYPERTENSION
     Route: 048
     Dates: end: 20150402
  2. ASPIRIN. [Concomitant]
     Active Substance: ASPIRIN
     Dosage: NIGHT DOSE
     Route: 048
  3. DIOVAN [Concomitant]
     Active Substance: VALSARTAN
     Indication: HYPERTENSION
     Route: 048
  4. JANUMET [Concomitant]
     Active Substance: METFORMIN HYDROCHLORIDE\SITAGLIPTIN PHOSPHATE
     Dosage: 50 MG/500MG
     Route: 048
  5. MAGNESIUM OXIDE. [Concomitant]
     Active Substance: MAGNESIUM OXIDE
     Route: 048
  6. NASONEX [Concomitant]
     Active Substance: MOMETASONE FUROATE
     Route: 065
  7. VITAMIN B12 [Concomitant]
     Active Substance: CYANOCOBALAMIN
     Route: 048
  8. BACLOFEN. [Concomitant]
     Active Substance: BACLOFEN
     Indication: CHEST PAIN
     Route: 048
     Dates: end: 20150402
  9. CANAGLIFLOZIN [Suspect]
     Active Substance: CANAGLIFLOZIN
     Indication: TYPE 2 DIABETES MELLITUS
     Route: 048
     Dates: start: 20150324, end: 20150403
  10. COENZYME Q10 [Concomitant]
     Active Substance: UBIDECARENONE
     Route: 048
  11. CANAGLIFLOZIN [Suspect]
     Active Substance: CANAGLIFLOZIN
     Route: 048
  12. CYMBALTA [Concomitant]
     Active Substance: DULOXETINE HYDROCHLORIDE
     Route: 065
  13. FISH OIL [Concomitant]
     Active Substance: FISH OIL
     Route: 065
  14. LEVOTHYROXINE [Concomitant]
     Active Substance: LEVOTHYROXINE
     Indication: HYPOTHYROIDISM
     Route: 048
  15. ZETIA [Concomitant]
     Active Substance: EZETIMIBE
     Route: 048
  16. BACLOFEN. [Concomitant]
     Active Substance: BACLOFEN
     Indication: MUSCLE SPASMS
     Route: 048
     Dates: end: 20150402
  17. VITAMIN D3 [Concomitant]
     Active Substance: CHOLECALCIFEROL
     Route: 048
  18. CHLORTHALIDONE. [Concomitant]
     Active Substance: CHLORTHALIDONE
     Indication: CHEST PAIN
     Route: 065
     Dates: end: 20150402
  19. DULOXETINE [Concomitant]
     Active Substance: DULOXETINE
     Route: 065
  20. NEXIUM [Concomitant]
     Active Substance: ESOMEPRAZOLE MAGNESIUM
     Route: 065

REACTIONS (3)
  - Acute respiratory failure [Unknown]
  - Escherichia sepsis [Unknown]
  - Urinary tract infection bacterial [Unknown]

NARRATIVE: CASE EVENT DATE: 20150403
